FAERS Safety Report 10267238 (Version 1)
Quarter: 2014Q2

REPORT INFORMATION
  Report Type: Spontaneous
  Country: FR (occurrence: FR)
  Receive Date: 20140630
  Receipt Date: 20140630
  Transmission Date: 20141212
  Serious: Yes (Hospitalization)
  Sender: FDA-Public Use
  Company Number: FR-JNJFOC-20140616795

PATIENT
  Age: 79 Year
  Sex: Female

DRUGS (10)
  1. XARELTO [Suspect]
     Indication: PRODUCT USED FOR UNKNOWN INDICATION
     Route: 048
     Dates: start: 20131129, end: 20131205
  2. PERINDOPRIL [Concomitant]
     Route: 065
     Dates: end: 20011202
  3. LASILIX [Concomitant]
     Route: 065
     Dates: end: 20131202
  4. FRESUBIN [Concomitant]
     Route: 065
     Dates: end: 20131202
  5. LANTUS [Concomitant]
     Route: 065
  6. TARDYFERON [Concomitant]
     Route: 065
     Dates: end: 20131202
  7. PYLERA [Concomitant]
     Route: 065
     Dates: end: 20131202
  8. INEXIUM [Concomitant]
     Route: 065
  9. VASELINE [Concomitant]
     Route: 065
  10. NEO-MERCAZOLE [Concomitant]
     Route: 065
     Dates: end: 20131202

REACTIONS (3)
  - Cardiac failure [Recovering/Resolving]
  - Epistaxis [Recovering/Resolving]
  - Anaemia [Recovering/Resolving]
